FAERS Safety Report 6129627-6 (Version None)
Quarter: 2009Q1

REPORT INFORMATION
  Report Type: 
  Country: None (occurrence: None)
  Receive Date: 20090324
  Receipt Date: 20090317
  Transmission Date: 20090719
  Serious: Yes (Death, Other)
  Sender: FDA-Public Use
  Company Number: JP-SANOFI-SYNTHELABO-A01200902588

PATIENT
  Sex: Male

DRUGS (5)
  1. AVASTIN [Suspect]
     Indication: COLON CANCER METASTATIC
     Dosage: 5 MG/KG
     Route: 041
  2. IRINOTECAN HYDROCHLORIDE [Suspect]
     Indication: COLON CANCER METASTATIC
     Dosage: 180 MG/M2
     Route: 041
  3. CALCIUM LEVOFOLINATE [Suspect]
     Indication: COLON CANCER METASTATIC
     Dosage: 200 MG/M2
     Route: 041
  4. FLUOROURACIL [Suspect]
     Indication: COLON CANCER METASTATIC
     Dosage: 400 MG/M2
     Route: 042
  5. ELPLAT [Suspect]
     Indication: COLON CANCER METASTATIC
     Dosage: 85 MG/M2
     Route: 041
     Dates: start: 20080213, end: 20080213

REACTIONS (3)
  - CEREBRAL INFARCTION [None]
  - NEUROTOXICITY [None]
  - NEUTROPHIL COUNT DECREASED [None]
